FAERS Safety Report 21705151 (Version 1)
Quarter: 2022Q4

REPORT INFORMATION
  Report Type: Spontaneous
  Country: US (occurrence: None)
  Receive Date: 20221208
  Receipt Date: 20221208
  Transmission Date: 20230112
  Serious: Yes (Hospitalization)
  Sender: FDA-Public Use
  Company Number: None

PATIENT
  Age: 73 Year
  Sex: Female
  Weight: 78.4 kg

DRUGS (2)
  1. AZACITIDINE [Suspect]
     Active Substance: AZACITIDINE
     Dates: end: 20220516
  2. VENETOCLAX [Suspect]
     Active Substance: VENETOCLAX
     Dates: end: 20220523

REACTIONS (8)
  - Faeces discoloured [None]
  - Melaena [None]
  - Haemoglobin decreased [None]
  - Urine abnormality [None]
  - Malaise [None]
  - Fatigue [None]
  - Erythema [None]
  - Discomfort [None]

NARRATIVE: CASE EVENT DATE: 20220525
